FAERS Safety Report 7921585-4 (Version None)
Quarter: 2011Q4

REPORT INFORMATION
  Report Type: 
  Country: None (occurrence: None)
  Receive Date: 20111117
  Receipt Date: 20111116
  Transmission Date: 20120403
  Serious: Yes (Death, Other)
  Sender: FDA-Public Use
  Company Number: PHEH2006US02259

PATIENT
  Sex: Female
  Weight: 57.7 kg

DRUGS (14)
  1. FERROUS SULFATE TAB [Concomitant]
     Dosage: UNK UKN, QD
  2. FEOSOL [Concomitant]
  3. AREDIA [Suspect]
  4. PROTONIX [Concomitant]
     Dosage: 40 MG, QD
  5. HYDROCHLOROTHIAZIDE [Concomitant]
     Indication: HYPERTENSION
     Dosage: 12.5 MG, QD
  6. EPOETIN ALFA [Concomitant]
     Dosage: 40000 U, UNK
     Route: 058
  7. SENOKOT [Concomitant]
  8. ROXICET [Concomitant]
  9. RADIATION THERAPY [Concomitant]
     Dosage: 3000 CGY, UNK
     Dates: end: 20040123
  10. PEGFILGRASTIM [Concomitant]
     Dosage: 40000 U, UNK
     Route: 058
  11. OXYCODONE HCL AND ACETAMINOPHEN [Concomitant]
     Dosage: 5 MG OF OXYCODONE HYDROCHLORIDE AND 325 MG OF PARACETAMOL, 3-4/DAY
  12. DECADRON [Concomitant]
     Dosage: 4 MG, BID
  13. ZOMETA [Suspect]
     Indication: METASTASES TO BONE
     Dosage: 4 MG, MONTHLY
     Route: 042
     Dates: start: 20031101, end: 20050706
  14. CALCIUM W/VITAMIN D NOS [Concomitant]
     Dosage: UNK UKN, QD

REACTIONS (55)
  - NEOPLASM MALIGNANT [None]
  - WEIGHT DECREASED [None]
  - ORAL CAVITY FISTULA [None]
  - TOOTH DISORDER [None]
  - NEURALGIA [None]
  - IMPAIRED HEALING [None]
  - BASAL CELL CARCINOMA [None]
  - PYREXIA [None]
  - GAIT DISTURBANCE [None]
  - METASTASES TO SPINE [None]
  - HYPOALBUMINAEMIA [None]
  - BIOPSY BONE ABNORMAL [None]
  - BONE DISORDER [None]
  - PERIODONTAL INFECTION [None]
  - ERYTHEMA [None]
  - GINGIVAL BLEEDING [None]
  - TOOTH ABSCESS [None]
  - DEPRESSION [None]
  - SKIN LESION [None]
  - HAEMATURIA [None]
  - ANAEMIA [None]
  - SPINAL OSTEOARTHRITIS [None]
  - SENSORY LOSS [None]
  - DYSPNOEA [None]
  - OSTEOPENIA [None]
  - ANGIOSARCOMA [None]
  - PAIN [None]
  - INJURY [None]
  - HYPERGLYCAEMIA [None]
  - ALPHA GLOBULIN INCREASED [None]
  - HEPATIC LESION [None]
  - BONE FRAGMENTATION [None]
  - MASTICATION DISORDER [None]
  - HEADACHE [None]
  - DIARRHOEA [None]
  - OEDEMA [None]
  - CONSTIPATION [None]
  - HYPOAESTHESIA [None]
  - METASTASES TO BONE [None]
  - OSTEONECROSIS OF JAW [None]
  - DEFORMITY [None]
  - EMOTIONAL DISTRESS [None]
  - ANXIETY [None]
  - ARTHRALGIA [None]
  - METASTASES TO LUNG [None]
  - METASTASES TO LIVER [None]
  - CACHEXIA [None]
  - DYSURIA [None]
  - ASTHENIA [None]
  - FATIGUE [None]
  - NEOPLASM PROGRESSION [None]
  - METASTATIC NEOPLASM [None]
  - STOMATITIS NECROTISING [None]
  - GINGIVAL SWELLING [None]
  - PAIN IN JAW [None]
